FAERS Safety Report 21148397 (Version 2)
Quarter: 2022Q3

REPORT INFORMATION
  Report Type: Spontaneous
  Country: US (occurrence: US)
  Receive Date: 20220729
  Receipt Date: 20220808
  Transmission Date: 20221026
  Serious: No
  Sender: FDA-Public Use
  Company Number: US-BRISTOL-MYERS SQUIBB COMPANY-2022-073374

PATIENT
  Age: 65 Year
  Sex: Male
  Weight: 122.92 kg

DRUGS (2)
  1. REVLIMID [Suspect]
     Active Substance: LENALIDOMIDE
     Indication: Plasma cell myeloma
     Route: 048
     Dates: start: 20211201
  2. REVLIMID [Suspect]
     Active Substance: LENALIDOMIDE
     Dosage: 21 D AND 7 D OFF
     Route: 048

REACTIONS (3)
  - White blood cell count decreased [Recovering/Resolving]
  - Platelet count decreased [Recovering/Resolving]
  - White blood cell count decreased [Not Recovered/Not Resolved]
